FAERS Safety Report 5981677-6 (Version None)
Quarter: 2008Q4

REPORT INFORMATION
  Report Type: 
  Country: None (occurrence: None)
  Receive Date: 20081205
  Receipt Date: 20081126
  Transmission Date: 20090506
  Serious: Yes (Other)
  Sender: FDA-Public Use
  Company Number: SE-ABBOTT-08P-150-0490606-01

PATIENT
  Sex: Male

DRUGS (2)
  1. HUMIRA [Suspect]
     Indication: CROHN'S DISEASE
     Route: 058
     Dates: end: 20081117
  2. ZOLMITRIPTAN [Concomitant]
     Indication: MIGRAINE
     Dates: start: 20030323

REACTIONS (1)
  - SWEAT GLAND INFECTION [None]
